FAERS Safety Report 11778140 (Version 1)
Quarter: 2015Q4

REPORT INFORMATION
  Report Type: Spontaneous
  Country: US (occurrence: US)
  Receive Date: 20151125
  Receipt Date: 20151125
  Transmission Date: 20160304
  Serious: Yes (Hospitalization)
  Sender: FDA-Public Use
  Company Number: US-BRISTOL-MYERS SQUIBB COMPANY-BMS-2015-080590

PATIENT
  Age: 70 Year
  Sex: Male
  Weight: 110 kg

DRUGS (18)
  1. CLOPIDOGREL [Concomitant]
     Active Substance: CLOPIDOGREL BISULFATE
     Indication: CORONARY ARTERY DISEASE
     Dosage: UNK
     Route: 065
     Dates: start: 20140714
  2. INSULIN ASPART [Concomitant]
     Active Substance: INSULIN ASPART
     Indication: DIABETES MELLITUS
     Dosage: UNK
     Route: 065
     Dates: start: 20150804
  3. MAGNESIUM [Concomitant]
     Active Substance: MAGNESIUM
     Indication: MINERAL SUPPLEMENTATION
     Dosage: UNK
     Route: 065
     Dates: start: 20120917
  4. POTASSIUM CITRATE. [Concomitant]
     Active Substance: POTASSIUM CITRATE
     Indication: MINERAL SUPPLEMENTATION
     Dosage: UNK
     Route: 065
     Dates: start: 20140429
  5. METOPROLOL [Concomitant]
     Active Substance: METOPROLOL
     Indication: HYPERTENSION
     Dosage: UNK
     Route: 065
     Dates: start: 20140429
  6. METFORMIN HYDROCHLORIDE. [Suspect]
     Active Substance: METFORMIN HYDROCHLORIDE
     Indication: DIABETES MELLITUS
     Dosage: 1000 MG, BID
     Route: 048
     Dates: start: 20150825, end: 20151003
  7. INDAPAMIDE. [Suspect]
     Active Substance: INDAPAMIDE
     Indication: HYPERTENSION
     Dosage: 1.25 MG, QD
     Route: 048
     Dates: start: 20150413, end: 20151003
  8. ATORVASTATIN [Concomitant]
     Active Substance: ATORVASTATIN
     Indication: HYPERLIPIDAEMIA
     Dosage: UNK
     Route: 065
     Dates: start: 20120917
  9. NAPROXEN. [Concomitant]
     Active Substance: NAPROXEN
     Indication: ARTHRITIS
     Dosage: UNK
     Route: 065
     Dates: start: 20140429
  10. VITAMIN B COMPLEX WITH VITAMINS [Concomitant]
     Indication: VITAMIN SUPPLEMENTATION
     Route: 065
  11. NITROGLYCERIN. [Concomitant]
     Active Substance: NITROGLYCERIN
     Indication: CHEST PAIN
     Dosage: UNK
     Route: 065
     Dates: start: 20150413
  12. ASPIRIN                            /00002701/ [Concomitant]
     Active Substance: ASPIRIN
     Indication: CORONARY ARTERY DISEASE
     Dosage: UNK
     Route: 065
     Dates: start: 20120917
  13. ISOSORBIDE. [Concomitant]
     Active Substance: ISOSORBIDE
     Indication: ANGINA PECTORIS
     Dosage: UNK
     Route: 065
     Dates: start: 20150121
  14. CANAGLIFLOZIN [Concomitant]
     Active Substance: CANAGLIFLOZIN
     Indication: DIABETES MELLITUS
     Dosage: UNK
     Route: 065
     Dates: start: 20120911
  15. CHOLECALCIFEROL [Concomitant]
     Active Substance: CHOLECALCIFEROL
     Indication: VITAMIN SUPPLEMENTATION
     Dosage: UNK
     Route: 065
     Dates: start: 20140429
  16. GABAPENTIN. [Concomitant]
     Active Substance: GABAPENTIN
     Indication: DIABETIC NEUROPATHY
     Dosage: UNK
     Route: 065
     Dates: start: 20140429
  17. LIRAGLUTIDE [Concomitant]
     Active Substance: LIRAGLUTIDE
     Indication: DIABETES MELLITUS
     Dosage: UNK
     Route: 065
     Dates: start: 20150826
  18. OXYCODONE [Concomitant]
     Active Substance: OXYCODONE
     Indication: ARTHRITIS
     Dosage: UNK
     Route: 065
     Dates: start: 20120706

REACTIONS (1)
  - Pancreatitis acute [Recovered/Resolved]

NARRATIVE: CASE EVENT DATE: 20150929
